FAERS Safety Report 12133847 (Version 1)
Quarter: 2016Q1

REPORT INFORMATION
  Report Type: Spontaneous
  Country: US (occurrence: US)
  Receive Date: 20160301
  Receipt Date: 20160301
  Transmission Date: 20160526
  Serious: No
  Sender: FDA-Public Use
  Company Number: US-ALEMBIC PHARMACUETICALS LIMITED-2015SCAL000823

PATIENT
  Age: 91 Year
  Sex: Female
  Weight: 54.42 kg

DRUGS (1)
  1. MEPROBAMATE. [Suspect]
     Active Substance: MEPROBAMATE
     Indication: ANXIETY
     Dosage: AS NEEDED (20 YEARS)

REACTIONS (2)
  - Myalgia [Unknown]
  - Headache [Unknown]
